FAERS Safety Report 5457179-2 (Version None)
Quarter: 2007Q3

REPORT INFORMATION
  Report Type: 
  Country: None (occurrence: None)
  Receive Date: 20070918
  Receipt Date: 20070908
  Transmission Date: 20080115
  Serious: Yes (Death, Hospitalization, Other)
  Sender: FDA-Public Use
  Company Number: US-PFIZER INC-2007050163

PATIENT
  Sex: Male

DRUGS (5)
  1. SUTENT [Suspect]
     Indication: RENAL CELL CARCINOMA STAGE UNSPECIFIED
     Route: 048
     Dates: start: 20070501, end: 20070528
  2. PANTOPRAZOLE SODIUM [Concomitant]
  3. SERTRALINE [Concomitant]
  4. TYLENOL (CAPLET) [Concomitant]
  5. MIRALAX [Concomitant]

REACTIONS (16)
  - ANAEMIA [None]
  - ASTHENIA [None]
  - CACHEXIA [None]
  - DISEASE PROGRESSION [None]
  - ECCHYMOSIS [None]
  - INTERSTITIAL LUNG DISEASE [None]
  - MALIGNANT NEOPLASM PROGRESSION [None]
  - MALNUTRITION [None]
  - NAUSEA [None]
  - OEDEMA PERIPHERAL [None]
  - PITTING OEDEMA [None]
  - PLEURAL EFFUSION [None]
  - PULMONARY FIBROSIS [None]
  - RENAL CELL CARCINOMA STAGE UNSPECIFIED [None]
  - SKIN DISCOLOURATION [None]
  - THROMBOCYTOPENIA [None]
